FAERS Safety Report 25874464 (Version 1)
Quarter: 2025Q4

REPORT INFORMATION
  Report Type: Spontaneous
  Country: US (occurrence: None)
  Receive Date: 20251002
  Receipt Date: 20251002
  Transmission Date: 20260117
  Serious: Yes (Other)
  Sender: FDA-CTU
  Company Number: None

PATIENT
  Age: 41 Year
  Sex: Female

DRUGS (2)
  1. CYANOCOBALAMIN\TOPIRAMATE [Suspect]
     Active Substance: CYANOCOBALAMIN\TOPIRAMATE
     Indication: Weight decreased
     Dosage: FREQUENCY : TWICE A DAY;?
     Route: 048
  2. METFORMIN HYDROCHLORIDE [Suspect]
     Active Substance: METFORMIN HYDROCHLORIDE
     Dates: start: 20250731, end: 20250925

REACTIONS (2)
  - Cholelithiasis [None]
  - Therapy cessation [None]

NARRATIVE: CASE EVENT DATE: 20250926
